FAERS Safety Report 5401480-5 (Version None)
Quarter: 2007Q3

REPORT INFORMATION
  Report Type: 
  Country: None (occurrence: None)
  Receive Date: 20070731
  Receipt Date: 20060804
  Transmission Date: 20080115
  Serious: No
  Sender: FDA-Public Use
  Company Number: A0611024A

PATIENT
  Age: 82 Year
  Sex: Female
  Weight: 78.2 kg

DRUGS (1)
  1. DYAZIDE [Suspect]
     Indication: DRUG USE FOR UNKNOWN INDICATION
     Route: 048
     Dates: start: 20060206, end: 20060426

REACTIONS (3)
  - HYPERSENSITIVITY [None]
  - MUSCLE SPASMS [None]
  - RASH [None]
